FAERS Safety Report 5746866-4 (Version None)
Quarter: 2008Q2

REPORT INFORMATION
  Report Type: 
  Country: None (occurrence: None)
  Receive Date: 20080520
  Receipt Date: 20080520
  Transmission Date: 20081010
  Serious: No
  Sender: FDA-Public Use
  Company Number: None

PATIENT
  Sex: Female

DRUGS (1)
  1. CREST PRO HEALTH NIGHT ORAL RINSE [Suspect]

REACTIONS (1)
  - TOOTH DISCOLOURATION [None]
